FAERS Safety Report 18038332 (Version 1)
Quarter: 2020Q3

REPORT INFORMATION
  Report Type: Report from Study
  Country: CN (occurrence: CN)
  Receive Date: 20200717
  Receipt Date: 20200717
  Transmission Date: 20201103
  Serious: Yes (Other)
  Sender: FDA-Public Use
  Company Number: CN-JNJFOC-20200713358

PATIENT

DRUGS (1)
  1. RISPERDAL [Suspect]
     Active Substance: RISPERIDONE
     Indication: SCHIZOPHRENIA
     Route: 065

REACTIONS (9)
  - Blood glucose increased [Unknown]
  - Cardiac dysfunction [Unknown]
  - Alanine aminotransferase increased [Unknown]
  - Low density lipoprotein increased [Unknown]
  - Body mass index increased [Unknown]
  - High density lipoprotein decreased [Unknown]
  - White blood cell count decreased [Unknown]
  - Electrocardiogram QT prolonged [Unknown]
  - Blood prolactin increased [Recovering/Resolving]
